FAERS Safety Report 4340961-2 (Version None)
Quarter: 2004Q2

REPORT INFORMATION
  Report Type: 
  Country: None (occurrence: None)
  Receive Date: 20040413
  Receipt Date: 20040405
  Transmission Date: 20050107
  Serious: Yes (Other)
  Sender: FDA-Public Use
  Company Number: 2004-01426

PATIENT
  Age: 81 Year
  Sex: Female

DRUGS (2)
  1. CHLOROQUINE (WATSON LABORATORIES) [Suspect]
     Indication: POLYARTHRITIS
     Dosage: 250 MG/DAY, ORAL
     Route: 048
     Dates: start: 19970101, end: 20020101
  2. TRAMADOL HCL [Concomitant]

REACTIONS (3)
  - CSF PROTEIN INCREASED [None]
  - MYOPATHY [None]
  - POLYNEUROPATHY [None]
